FAERS Safety Report 20094315 (Version 3)
Quarter: 2021Q4

REPORT INFORMATION
  Report Type: Spontaneous
  Country: US (occurrence: US)
  Receive Date: 20211122
  Receipt Date: 20211231
  Transmission Date: 20220304
  Serious: Yes (Hospitalization, Other)
  Sender: FDA-Public Use
  Company Number: US-BIOVITRUM-2021US7667

PATIENT
  Sex: Male

DRUGS (9)
  1. SYNAGIS [Suspect]
     Active Substance: PALIVIZUMAB
     Indication: Antiviral prophylaxis
     Route: 030
  2. SYNAGIS [Suspect]
     Active Substance: PALIVIZUMAB
     Route: 030
     Dates: start: 202011
  3. NEXIUM [Concomitant]
     Active Substance: ESOMEPRAZOLE MAGNESIUM
  4. VITAMINS [Concomitant]
     Active Substance: VITAMINS
  5. LACTULOSE [Concomitant]
     Active Substance: LACTULOSE
  6. CAROSPIR [Concomitant]
     Active Substance: SPIRONOLACTONE
  7. ALBUTEROL [Concomitant]
     Active Substance: ALBUTEROL
  8. BUDESONIDE [Concomitant]
     Active Substance: BUDESONIDE
  9. DIURIL [Concomitant]
     Active Substance: CHLOROTHIAZIDE

REACTIONS (9)
  - Pneumonia [Unknown]
  - Respiratory syncytial virus infection [Unknown]
  - Chronic respiratory disease [Unknown]
  - Respiratory rate decreased [Unknown]
  - Heart rate increased [Unknown]
  - Gastroenteritis viral [Unknown]
  - Cerebral palsy [Unknown]
  - Developmental delay [Unknown]
  - Illness [Unknown]
